FAERS Safety Report 23150782 (Version 1)
Quarter: 2023Q4

REPORT INFORMATION
  Report Type: Report from Study
  Country: US (occurrence: US)
  Receive Date: 20231106
  Receipt Date: 20231106
  Transmission Date: 20240110
  Serious: Yes (Death, Other)
  Sender: FDA-Public Use
  Company Number: US-PFIZER INC-PV202300180463

PATIENT

DRUGS (6)
  1. DOXORUBICIN HYDROCHLORIDE [Suspect]
     Active Substance: DOXORUBICIN HYDROCHLORIDE
     Indication: Diffuse large B-cell lymphoma
     Dosage: UNK, CYCLIC, DAY 1 OF EACH 21-DAY CYCLE FOR 6 CYCLE
  2. VINCRISTINE SULFATE [Suspect]
     Active Substance: VINCRISTINE SULFATE
     Indication: Diffuse large B-cell lymphoma
     Dosage: UNK, CYCLIC, DAY 1 OF EACH 21-DAY CYCLE FOR 6 CYCLE
  3. CYCLOPHOSPHAMIDE [Suspect]
     Active Substance: CYCLOPHOSPHAMIDE
     Indication: Diffuse large B-cell lymphoma
     Dosage: UNK, CYCLIC, DAY 1 OF EACH 21-DAY CYCLE FOR 6 CYCLE
  4. PREDNISONE [Suspect]
     Active Substance: PREDNISONE
     Indication: Diffuse large B-cell lymphoma
     Dosage: UNK, CYCLIC, DAY 1 OF EACH 21-DAY CYCLE FOR 6 CYCLE
  5. MOSUNETUZUMAB [Suspect]
     Active Substance: MOSUNETUZUMAB
     Indication: Diffuse large B-cell lymphoma
     Dosage: UNK, CYCLIC, DAY 1 (1 MG), DAY 8 (2 MG), AND DAY 15 (30 MG)
     Route: 042
  6. MOSUNETUZUMAB [Suspect]
     Active Substance: MOSUNETUZUMAB
     Dosage: UNK, CYCLIC, 30 MG WAS GIVEN ON DAY 1 OF CYCLES 2 TO 6
     Route: 042

REACTIONS (1)
  - Pneumonia [Fatal]
